FAERS Safety Report 5473074-7 (Version None)
Quarter: 2007Q3

REPORT INFORMATION
  Report Type: 
  Country: None (occurrence: None)
  Receive Date: 20070927
  Receipt Date: 20070919
  Transmission Date: 20080115
  Serious: Yes (Other)
  Sender: FDA-Public Use
  Company Number: US021281

PATIENT
  Age: 28 Year
  Sex: Female

DRUGS (1)
  1. TRISENOX [Suspect]
     Dosage: INTRAVENOUS DRIP
     Route: 041

REACTIONS (2)
  - PLEURISY [None]
  - PYREXIA [None]
